FAERS Safety Report 10171623 (Version 1)
Quarter: 2014Q2

REPORT INFORMATION
  Report Type: Spontaneous
  Country: US (occurrence: US)
  Receive Date: 20140514
  Receipt Date: 20140514
  Transmission Date: 20141212
  Serious: Yes (Other)
  Sender: FDA-Public Use
  Company Number: US-SA-2014SA058337

PATIENT
  Age: 57 Year
  Sex: Female

DRUGS (3)
  1. APIDRA [Suspect]
     Indication: DIABETES MELLITUS
     Dosage: DOSE:15 UNIT(S)
     Route: 065
     Dates: start: 2013
  2. APIDRA [Suspect]
     Indication: DIABETES MELLITUS
     Route: 065
  3. HUMULIN [Concomitant]

REACTIONS (2)
  - Toe operation [Unknown]
  - Drug dose omission [Unknown]
